FAERS Safety Report 19745753 (Version 1)
Quarter: 2021Q3

REPORT INFORMATION
  Report Type: Report from Study
  Country: ME (occurrence: ME)
  Receive Date: 20210825
  Receipt Date: 20210825
  Transmission Date: 20211014
  Serious: Yes (Other)
  Sender: FDA-Public Use
  Company Number: ME-TAKEDA-2021TUS052175

PATIENT
  Sex: Female

DRUGS (1)
  1. VEDOLIZUMAB [Suspect]
     Active Substance: VEDOLIZUMAB
     Indication: INFLAMMATORY BOWEL DISEASE
     Dosage: 300 MILLIGRAM
     Route: 042
     Dates: start: 20180403, end: 202108

REACTIONS (1)
  - Colitis ulcerative [Recovered/Resolved]
